FAERS Safety Report 24726963 (Version 12)
Quarter: 2025Q1

REPORT INFORMATION
  Report Type: Spontaneous
  Country: MX (occurrence: MX)
  Receive Date: 20241212
  Receipt Date: 20250326
  Transmission Date: 20250409
  Serious: Yes (Other)
  Sender: UNITED THERAPEUTICS
  Company Number: MX-UNITED THERAPEUTICS-UNT-2024-037730

PATIENT
  Age: 29 Year
  Weight: 109 kg

DRUGS (34)
  1. REMODULIN [Suspect]
     Active Substance: TREPROSTINIL
     Indication: Pulmonary arterial hypertension
  2. REMODULIN [Suspect]
     Active Substance: TREPROSTINIL
  3. REMODULIN [Suspect]
     Active Substance: TREPROSTINIL
  4. REMODULIN [Suspect]
     Active Substance: TREPROSTINIL
  5. REMODULIN [Suspect]
     Active Substance: TREPROSTINIL
  6. REMODULIN [Suspect]
     Active Substance: TREPROSTINIL
  7. REMODULIN [Suspect]
     Active Substance: TREPROSTINIL
  8. REMODULIN [Suspect]
     Active Substance: TREPROSTINIL
  9. REMODULIN [Suspect]
     Active Substance: TREPROSTINIL
  10. REMODULIN [Suspect]
     Active Substance: TREPROSTINIL
  11. REMODULIN [Suspect]
     Active Substance: TREPROSTINIL
  12. REMODULIN [Suspect]
     Active Substance: TREPROSTINIL
  13. ACETAMINOPHEN [Concomitant]
     Active Substance: ACETAMINOPHEN
     Indication: Headache
  14. ACETAMINOPHEN [Concomitant]
     Active Substance: ACETAMINOPHEN
     Indication: Cough
  15. FUROSEMIDE [Concomitant]
     Active Substance: FUROSEMIDE
     Indication: Oedema peripheral
     Dosage: UNK [1 TABLET], QD
  16. Troferit flow [Concomitant]
     Indication: Cough
  17. IBUPROFEN [Concomitant]
     Active Substance: IBUPROFEN
     Indication: Cough
     Dosage: 800 MG (1 TABLET), Q8H
  18. OXYGEN [Concomitant]
     Active Substance: OXYGEN
     Indication: Product used for unknown indication
  19. SALINE [Concomitant]
     Active Substance: SODIUM CHLORIDE
     Indication: Nasal pruritus
  20. SALINE [Concomitant]
     Active Substance: SODIUM CHLORIDE
     Indication: Epistaxis
  21. PEPTO-BISMOL [Concomitant]
     Active Substance: BISMUTH SUBSALICYLATE
     Indication: Diarrhoea
  22. PEPTO-BISMOL [Concomitant]
     Active Substance: BISMUTH SUBSALICYLATE
     Indication: Abdominal pain upper
  23. ETHAMSYLATE [Concomitant]
     Active Substance: ETHAMSYLATE
     Indication: Product used for unknown indication
     Dosage: 500 MG, Q8H
  24. Zerpyco duo [Concomitant]
     Indication: Product used for unknown indication
     Dosage: UNK, Q8H [TAKE 1 EVERY 8 HOURS UNTIL FINISHED]
  25. PANTOPRAZOLE [Concomitant]
     Active Substance: PANTOPRAZOLE
     Indication: Product used for unknown indication
     Dosage: 40 MG, Q12H [FOR 4 WEEKS]
  26. Lactulax [Concomitant]
     Indication: Constipation
  27. SPIRONOLACTONE [Concomitant]
     Active Substance: SPIRONOLACTONE
     Indication: Oedema peripheral
  28. SPIRONOLACTONE [Concomitant]
     Active Substance: SPIRONOLACTONE
     Indication: Ascites
  29. CEPHALEXIN [Concomitant]
     Active Substance: CEPHALEXIN
     Indication: Product used for unknown indication
     Dosage: 500 MG (2 CAPSULES FOR 5 DAYS), Q12H
  30. ALLOPURINOL [Concomitant]
     Active Substance: ALLOPURINOL
     Indication: Product used for unknown indication
     Dosage: 300 MG (1 TABLET FOR 30 DAYS), QD
  31. Loratadine;Phenylephrine hydrochloride [Concomitant]
     Indication: Nasal congestion
     Dosage: UNK (1 EVERY 12 HOURS), Q12H
  32. Ambroxol;Dextromethorphan [Concomitant]
     Indication: Nasal congestion
     Dosage: UNK (2 TABLE SPOON), Q8H
  33. BETAMETHASONE [Concomitant]
     Active Substance: BETAMETHASONE
     Indication: Cough
  34. DROPROPIZINE [Concomitant]
     Active Substance: DROPROPIZINE
     Indication: Cough

REACTIONS (39)
  - Oedema peripheral [Recovering/Resolving]
  - Ascites [Recovering/Resolving]
  - Pharyngeal injury [Recovering/Resolving]
  - Headache [Recovered/Resolved]
  - Vomiting [Recovered/Resolved]
  - Dyspnoea [Recovering/Resolving]
  - Chest discomfort [Recovering/Resolving]
  - Decreased appetite [Recovering/Resolving]
  - Cough [Not Recovered/Not Resolved]
  - Asthma [Recovering/Resolving]
  - Fatigue [Unknown]
  - Malaise [Recovered/Resolved]
  - Nausea [Recovered/Resolved]
  - Abdominal pain upper [Recovered/Resolved]
  - Diarrhoea [Recovering/Resolving]
  - Faeces discoloured [Recovering/Resolving]
  - Weight fluctuation [Recovering/Resolving]
  - Oxygen saturation decreased [Unknown]
  - Influenza [Not Recovered/Not Resolved]
  - Epistaxis [Recovering/Resolving]
  - Catheter site haemorrhage [Recovered/Resolved]
  - Haemorrhoids [Recovering/Resolving]
  - Constipation [Recovered/Resolved]
  - Early satiety [Recovering/Resolving]
  - Polycythaemia [Unknown]
  - Flushing [Unknown]
  - Depressed mood [Not Recovered/Not Resolved]
  - Crying [Not Recovered/Not Resolved]
  - Nervousness [Recovering/Resolving]
  - Frustration tolerance decreased [Recovering/Resolving]
  - Palpitations [Recovering/Resolving]
  - Alopecia [Not Recovered/Not Resolved]
  - Muscle spasms [Recovering/Resolving]
  - Stress [Not Recovered/Not Resolved]
  - Conversion disorder [Not Recovered/Not Resolved]
  - Inability to afford medication [Unknown]
  - Product use issue [Recovered/Resolved]
  - Device infusion issue [Recovered/Resolved]
  - Device placement issue [Recovered/Resolved]
